FAERS Safety Report 8756896 (Version 5)
Quarter: 2014Q3

REPORT INFORMATION
  Report Type: Spontaneous
  Country: US (occurrence: US)
  Receive Date: 20120828
  Receipt Date: 20140926
  Transmission Date: 20150326
  Serious: Yes (Hospitalization, Other)
  Sender: FDA-Public Use
  Company Number: US-009507513-1208USA008538

PATIENT
  Sex: Female
  Weight: 56.24 kg

DRUGS (4)
  1. ALENDRONATE SODIUM. [Suspect]
     Active Substance: ALENDRONATE SODIUM
     Indication: OSTEOPENIA
  2. FOSAMAX [Suspect]
     Active Substance: ALENDRONATE SODIUM
     Indication: OSTEOPOROSIS
     Dosage: 10 MG, QD
     Route: 048
  3. ALENDRONATE SODIUM. [Suspect]
     Active Substance: ALENDRONATE SODIUM
     Indication: OSTEOPOROSIS
  4. FOSAMAX [Suspect]
     Active Substance: ALENDRONATE SODIUM
     Indication: OSTEOPENIA
     Dosage: 70 MG, QW
     Route: 048
     Dates: start: 200102, end: 201105

REACTIONS (52)
  - Bronchospasm [Unknown]
  - Exostosis [Unknown]
  - Facial operation [Unknown]
  - Back pain [Unknown]
  - Hyperthyroidism [Unknown]
  - Femur fracture [Unknown]
  - Tooth extraction [Unknown]
  - Dental implantation [Unknown]
  - Osteoarthritis [Unknown]
  - Arthritis [Unknown]
  - Depression [Unknown]
  - Adenotonsillectomy [Unknown]
  - Coeliac disease [Unknown]
  - Viral upper respiratory tract infection [Unknown]
  - Open reduction of fracture [Unknown]
  - Renal failure chronic [Not Recovered/Not Resolved]
  - Thyroid mass [Unknown]
  - Dysphagia [Unknown]
  - Skin abrasion [Unknown]
  - Swelling [Unknown]
  - Tenderness [Unknown]
  - Breast calcifications [Unknown]
  - Oestrogen deficiency [Unknown]
  - Rheumatoid arthritis [Unknown]
  - Sinus operation [Unknown]
  - Anaemia postoperative [Unknown]
  - Eczema [Unknown]
  - Adverse event [Unknown]
  - Ankle fracture [Unknown]
  - Pollakiuria [Unknown]
  - Palpitations [Unknown]
  - Dacryostenosis acquired [Unknown]
  - Fibrosis [Unknown]
  - Dry eye [Unknown]
  - Chronic obstructive pulmonary disease [Unknown]
  - Intramedullary rod insertion [Recovered/Resolved]
  - Thyroidectomy [Unknown]
  - Gastrooesophageal reflux disease [Unknown]
  - Dysaesthesia [Unknown]
  - Bronchiectasis [Unknown]
  - Hypoxia [Unknown]
  - Adverse event [Unknown]
  - Essential hypertension [Unknown]
  - Hypothyroidism [Unknown]
  - Breast operation [Unknown]
  - Macrocytosis [Unknown]
  - Gastritis [Unknown]
  - Thyroid cyst [Unknown]
  - Lung infection pseudomonal [Unknown]
  - Pulmonary granuloma [Unknown]
  - Tricuspid valve incompetence [Unknown]
  - Dysuria [Recovered/Resolved]

NARRATIVE: CASE EVENT DATE: 19980211
